FAERS Safety Report 6924008-7 (Version None)
Quarter: 2010Q3

REPORT INFORMATION
  Report Type: 
  Country: None (occurrence: None)
  Receive Date: 20100813
  Receipt Date: 20100803
  Transmission Date: 20110219
  Serious: Yes (Hospitalization)
  Sender: FDA-Public Use
  Company Number: US-ELI_LILLY_AND_COMPANY-US201008000384

PATIENT
  Sex: Male

DRUGS (4)
  1. CIALIS [Suspect]
     Indication: ERECTILE DYSFUNCTION
     Dosage: 5 MG, DAILY (1/D)
     Dates: start: 20070401
  2. PAXIL [Concomitant]
     Dosage: 40 MG, UNK
  3. LEXAPRO [Concomitant]
  4. LUNESTA [Concomitant]

REACTIONS (5)
  - DEPRESSION [None]
  - ERECTILE DYSFUNCTION [None]
  - FEAR [None]
  - INCONTINENCE [None]
  - INTENTIONAL DRUG MISUSE [None]
